FAERS Safety Report 24354318 (Version 1)
Quarter: 2024Q3

REPORT INFORMATION
  Report Type: Spontaneous
  Country: US (occurrence: None)
  Receive Date: 20240922
  Receipt Date: 20240922
  Transmission Date: 20241016
  Serious: No
  Sender: Public
  Company Number: None

PATIENT
  Age: 94 Year
  Sex: Male
  Weight: 65.25 kg

DRUGS (2)
  1. PAXLOVID [Suspect]
     Active Substance: NIRMATRELVIR\RITONAVIR
     Dosage: 3 DF DOSAGE FORM TWICE A DAY ORAL ?
     Route: 048
     Dates: start: 20240916, end: 20240920
  2. COVID-19 VACCINE NOS [Suspect]
     Active Substance: COVID-19 VACCINE

REACTIONS (2)
  - Incoherent [None]
  - Hallucinations, mixed [None]

NARRATIVE: CASE EVENT DATE: 20240920
